FAERS Safety Report 8164176-5 (Version None)
Quarter: 2012Q1

REPORT INFORMATION
  Report Type: 
  Country: None (occurrence: None)
  Receive Date: 20120221
  Receipt Date: 20120209
  Transmission Date: 20120608
  Serious: Yes (Hospitalization)
  Sender: FDA-Public Use
  Company Number: AUR-APL-2012-00888

PATIENT
  Age: 83 Year
  Sex: Female

DRUGS (6)
  1. NICORANDIL (NICORANDIL) [Suspect]
     Indication: PRODUCT USED FOR UNKNOWN INDICATION
  2. BISOPROLOL FUMARATE [Suspect]
     Indication: PRODUCT USED FOR UNKNOWN INDICATION
  3. PROCORALAN (IVABRADINE HDYROCHLORIDE) [Suspect]
     Indication: PRODUCT USED FOR UNKNOWN INDICATION
     Dosage: (15 MG), ORAL, 10 MG (5 MG, 2 IN 1 D), ORAL, 10 MG (5 MG, 2 IN 1 D), ORAL
     Route: 048
     Dates: start: 20120103
  4. PROCORALAN (IVABRADINE HDYROCHLORIDE) [Suspect]
     Indication: PRODUCT USED FOR UNKNOWN INDICATION
     Dosage: (15 MG), ORAL, 10 MG (5 MG, 2 IN 1 D), ORAL, 10 MG (5 MG, 2 IN 1 D), ORAL
     Route: 048
     Dates: start: 20120104
  5. PROCORALAN (IVABRADINE HDYROCHLORIDE) [Suspect]
     Indication: PRODUCT USED FOR UNKNOWN INDICATION
     Dosage: (15 MG), ORAL, 10 MG (5 MG, 2 IN 1 D), ORAL, 10 MG (5 MG, 2 IN 1 D), ORAL
     Route: 048
     Dates: start: 20111001, end: 20120102
  6. MONOMIL XL (ISOSORBIDE MONONITRATE) [Concomitant]

REACTIONS (4)
  - BLOOD PRESSURE DECREASED [None]
  - DIZZINESS [None]
  - INCORRECT DOSE ADMINISTERED [None]
  - HEART RATE DECREASED [None]
